FAERS Safety Report 9268944 (Version 4)
Quarter: 2013Q2

REPORT INFORMATION
  Report Type: Spontaneous
  Country: TW (occurrence: TW)
  Receive Date: 20130503
  Receipt Date: 20130606
  Transmission Date: 20140414
  Serious: Yes (Other)
  Sender: FDA-Public Use
  Company Number: TW-AMGEN-TWNSP2013030376

PATIENT
  Age: 65 Year
  Sex: Female

DRUGS (17)
  1. ENBREL [Suspect]
     Indication: RHEUMATOID ARTHRITIS
     Dosage: 25 MG, 2 TIMES/WK
     Route: 058
     Dates: start: 20101122, end: 20111006
  2. ENBREL [Suspect]
     Dosage: 25 MG, QWK
     Route: 058
     Dates: start: 20120814, end: 20121129
  3. ATORVASTATIN [Concomitant]
     Indication: HYPERLIPIDAEMIA
     Dosage: 20 MG, QOD
     Route: 048
     Dates: start: 20101029, end: 20110321
  4. LIPITOR [Concomitant]
     Indication: HYPERLIPIDAEMIA
     Dosage: 40 MG, QOD
     Route: 048
     Dates: start: 20110418
  5. CELECOXIB [Concomitant]
     Indication: RHEUMATOID ARTHRITIS
     Dosage: 200 MG, QD
     Route: 048
     Dates: start: 20110418, end: 20121129
  6. FOLIC ACID [Concomitant]
     Indication: RHEUMATOID ARTHRITIS
     Dosage: 2.5 MG, QD
     Route: 048
     Dates: start: 20101029, end: 20101206
  7. FOLIC ACID [Concomitant]
     Dosage: 5 MG, QD
     Route: 048
     Dates: start: 20110711
  8. HYDROXYCHLOROQUINE SULFATE [Concomitant]
     Indication: RHEUMATOID ARTHRITIS
     Dosage: 200 MG, BID
     Route: 048
     Dates: start: 20110418
  9. INDAPAMIDE [Concomitant]
     Indication: HYPERTENSION
     Dosage: 1.25 MG, QD
     Route: 048
     Dates: start: 20101029
  10. METHOTREXATE [Concomitant]
     Indication: RHEUMATOID ARTHRITIS
     Dosage: 15 MG, QWK
     Route: 048
     Dates: start: 20101029
  11. METHYLPREDNISOLONE [Concomitant]
     Indication: RHEUMATOID ARTHRITIS
     Dosage: 2 MG, BID
     Route: 048
     Dates: start: 20101029, end: 20121203
  12. TRIAMCINOLONE ACETONIDE [Concomitant]
     Indication: RHEUMATOID ARTHRITIS
     Dosage: 20 MG, UNK
     Route: 030
     Dates: start: 20110516, end: 20110516
  13. ULTRACET [Concomitant]
     Indication: RHEUMATOID ARTHRITIS
     Dosage: 1 TABLET ONCE A DAY AT BEDTIME
     Route: 048
     Dates: start: 20100302, end: 20101122
  14. ULTRACET [Concomitant]
     Dosage: 1 TABLET ONCE A DAY AT BEDTIME
     Route: 048
     Dates: start: 20110418, end: 20110616
  15. ZOLPIDEM [Concomitant]
     Indication: RHEUMATOID ARTHRITIS
     Dosage: 10 MG ONCE A DAY AT BEDTIME
     Route: 048
     Dates: start: 20101220
  16. PROSULTIAMINE [Concomitant]
     Indication: ANAEMIA
     Dosage: 50 MG, BID
     Route: 048
     Dates: start: 20120220, end: 20120320
  17. COBAMAMIDE [Concomitant]
     Indication: ANAEMIA
     Dosage: 250 MCG, BID
     Route: 048
     Dates: start: 20120604, end: 20120814

REACTIONS (3)
  - Carcinoma in situ [Not Recovered/Not Resolved]
  - Breast cancer [Not Recovered/Not Resolved]
  - Nasopharyngitis [Not Recovered/Not Resolved]
